FAERS Safety Report 6611628-2 (Version None)
Quarter: 2010Q1

REPORT INFORMATION
  Report Type: 
  Country: None (occurrence: None)
  Receive Date: 20100303
  Receipt Date: 20100219
  Transmission Date: 20100710
  Serious: Yes (Other)
  Sender: FDA-Public Use
  Company Number: AU-WYE-G05603710

PATIENT
  Sex: Female

DRUGS (5)
  1. EFFEXOR XR [Suspect]
     Indication: MAJOR DEPRESSION
     Dosage: A NUMBER OF YEARS, THEN TWO ATTEMPTS TO WEAN OFF THE MEDICATION OVER 3 YEAR PERIOD WERE UNSUCCESSFUL
     Dates: start: 19980301
  2. EFFEXOR XR [Interacting]
  3. EFFEXOR XR [Interacting]
     Dosage: 150 MG EVERY
  4. CHAMPIX [Interacting]
     Indication: SMOKING CESSATION THERAPY
     Dosage: UNKNOWN
     Dates: start: 20091101
  5. CHAMPIX [Interacting]
     Dosage: UNKNOWN

REACTIONS (10)
  - ABNORMAL DREAMS [None]
  - ANXIETY [None]
  - CONDITION AGGRAVATED [None]
  - DEPRESSION [None]
  - FEELING ABNORMAL [None]
  - FEELING OF DESPAIR [None]
  - INHIBITORY DRUG INTERACTION [None]
  - INSOMNIA [None]
  - IRRITABILITY [None]
  - NAUSEA [None]
